FAERS Safety Report 8903757 (Version 3)
Quarter: 2012Q4

REPORT INFORMATION
  Report Type: 
  Country: FR (occurrence: FR)
  Receive Date: 20121113
  Receipt Date: 20121226
  Transmission Date: 20130627
  Serious: Yes (Hospitalization)
  Sender: FDA-Public Use
  Company Number: FR-JNJFOC-20121102472

PATIENT
  Sex: Male

DRUGS (7)
  1. DUROGESIC [Suspect]
     Indication: PAIN
     Route: 062
     Dates: start: 201206, end: 20120829
  2. UNSPECIFIED INGREDIENT [Suspect]
     Indication: ASTHMA
     Route: 048
     Dates: end: 20120829
  3. PYOSTACINE [Suspect]
     Indication: PRODUCT USED FOR UNKNOWN INDICATION
     Route: 048
     Dates: end: 20120829
  4. THERALENE [Suspect]
     Indication: PRODUCT USED FOR UNKNOWN INDICATION
     Route: 048
     Dates: end: 20120829
  5. CHOLECALCIFEROL [Suspect]
     Indication: PRODUCT USED FOR UNKNOWN INDICATION
     Route: 048
     Dates: end: 20120829
  6. ALPRAZOLAM [Concomitant]
     Route: 065
  7. MOVICOL [Concomitant]
     Route: 065

REACTIONS (3)
  - Aggression [Recovered/Resolved]
  - Confusional state [Recovered/Resolved]
  - Agitation [Recovered/Resolved]
